FAERS Safety Report 20007045 (Version 3)
Quarter: 2022Q3

REPORT INFORMATION
  Report Type: Spontaneous
  Country: JP (occurrence: JP)
  Receive Date: 20211028
  Receipt Date: 20220718
  Transmission Date: 20221026
  Serious: Yes (Hospitalization, Other)
  Sender: FDA-Public Use
  Company Number: JP-ONO-2021JP026544

PATIENT
  Age: 69 Year
  Sex: Male
  Weight: 56.7 kg

DRUGS (21)
  1. PARSABIV [Suspect]
     Active Substance: ETELCALCETIDE HYDROCHLORIDE
     Indication: Hyperparathyroidism secondary
     Dosage: 5 MILLIGRAM, Q56H
     Route: 010
     Dates: start: 20210222, end: 20210319
  2. PARSABIV [Suspect]
     Active Substance: ETELCALCETIDE HYDROCHLORIDE
     Dosage: 10 MILLIGRAM, Q56H
     Route: 010
     Dates: start: 20210322, end: 20210920
  3. PARSABIV [Suspect]
     Active Substance: ETELCALCETIDE HYDROCHLORIDE
     Dosage: 12.5 MILLIGRAM, Q56H
     Route: 010
     Dates: start: 20210922, end: 20211018
  4. PARSABIV [Suspect]
     Active Substance: ETELCALCETIDE HYDROCHLORIDE
     Dosage: 15 MILLIGRAM, Q56H
     Route: 010
     Dates: start: 20211020
  5. TEPRENONE [Concomitant]
     Active Substance: TEPRENONE
     Indication: Gastritis
     Dosage: 50 MG, AFTER MEAL
     Route: 048
     Dates: start: 20070824
  6. FOSRENOL [Concomitant]
     Active Substance: LANTHANUM CARBONATE
     Indication: Hyperphosphataemia
     Dosage: 750 MG, EVERYDAY
     Route: 048
     Dates: start: 20090819
  7. FOSRENOL [Concomitant]
     Active Substance: LANTHANUM CARBONATE
     Dosage: 1500 MG, EVERYDAY
     Route: 048
  8. LANSOPRAZOLE [Concomitant]
     Active Substance: LANSOPRAZOLE
     Indication: Gastric ulcer
     Dosage: 150 MG, AFTER BREAKFAST
     Route: 048
     Dates: start: 20101018
  9. AMLODIPINE BESYLATE [Concomitant]
     Active Substance: AMLODIPINE BESYLATE
     Indication: Hypertension
     Dosage: 5 MG, AFTER DINNER
     Route: 048
     Dates: start: 20141029
  10. LORMETAZEPAM [Concomitant]
     Active Substance: LORMETAZEPAM
     Indication: Insomnia
     Dosage: 1 MG, BEFORE BEDTIME
     Route: 048
     Dates: start: 20130118
  11. ROCALTROL [Concomitant]
     Active Substance: CALCITRIOL
     Dosage: 0.5 UG, Q56H
     Route: 065
     Dates: start: 20200424, end: 20201003
  12. ROCALTROL [Concomitant]
     Active Substance: CALCITRIOL
     Dosage: 1 UG, Q84H
     Dates: start: 20201006, end: 20201219
  13. ROCALTROL [Concomitant]
     Active Substance: CALCITRIOL
     Dosage: 1 UG, Q56H
     Dates: start: 20201222, end: 20210130
  14. ROCALTROL [Concomitant]
     Active Substance: CALCITRIOL
     Dosage: 1 UG, Q84H
     Route: 065
     Dates: start: 20210202, end: 20210514
  15. ROCALTROL [Concomitant]
     Active Substance: CALCITRIOL
     Dosage: 1 UG, Q56H
     Route: 065
     Dates: start: 20210517, end: 20211115
  16. ROCALTROL [Concomitant]
     Active Substance: CALCITRIOL
     Dosage: 0.5 UG, Q56H
     Route: 065
     Dates: start: 20211117, end: 20211222
  17. ROCALTROL [Concomitant]
     Active Substance: CALCITRIOL
     Dosage: 1 UG, Q84H
     Route: 065
     Dates: start: 20211224
  18. ROCALTROL [Concomitant]
     Active Substance: CALCITRIOL
     Dosage: 0.5 UG, Q56H
     Route: 065
     Dates: start: 20200424, end: 20201003
  19. ROCALTROL [Concomitant]
     Active Substance: CALCITRIOL
     Dosage: 0.5 UG, Q56H
     Dates: start: 20211117, end: 20211222
  20. CALTAN [Concomitant]
     Active Substance: CALCIUM CARBONATE
     Dosage: 1500 MG, EVERYDAY
     Route: 048
  21. Fesin [Concomitant]
     Dosage: 80 MG, QW
     Route: 065

REACTIONS (1)
  - Renal cancer [Recovering/Resolving]

NARRATIVE: CASE EVENT DATE: 20210827
